FAERS Safety Report 6086902-1 (Version None)
Quarter: 2009Q1

REPORT INFORMATION
  Report Type: 
  Country: None (occurrence: None)
  Receive Date: 20090219
  Receipt Date: 20090203
  Transmission Date: 20090719
  Serious: Yes (Death)
  Sender: FDA-Public Use
  Company Number: CHPA2009US01125

PATIENT
  Age: 71 Year
  Sex: Male

DRUGS (1)
  1. LAMISIL AT [Suspect]
     Indication: FUNGAL INFECTION
     Dosage: UNK, BID, TOPICAL
     Route: 061

REACTIONS (2)
  - LYMPHOMA [None]
  - MALIGNANT NEOPLASM PROGRESSION [None]
